FAERS Safety Report 8345648-7 (Version None)
Quarter: 2012Q2

REPORT INFORMATION
  Report Type: 
  Country: None (occurrence: None)
  Receive Date: 20120508
  Receipt Date: 20120423
  Transmission Date: 20120825
  Serious: Yes (Life-Threatening)
  Sender: FDA-Public Use
  Company Number: US-BAXTER-2012BAX003799

PATIENT
  Sex: Female
  Weight: 2.165 kg

DRUGS (2)
  1. STERILE WATER FOR INJECTION [Suspect]
  2. DEXTROSE 70% [Suspect]

REACTIONS (1)
  - WRONG DRUG ADMINISTERED [None]
